FAERS Safety Report 19239164 (Version 1)
Quarter: 2021Q2

REPORT INFORMATION
  Report Type: Report from Study
  Country: BR (occurrence: BR)
  Receive Date: 20210510
  Receipt Date: 20210510
  Transmission Date: 20210717
  Serious: Yes (Life-Threatening, Hospitalization)
  Sender: FDA-Public Use
  Company Number: NVSC2021BR104514

PATIENT
  Age: 83 Year
  Sex: Female

DRUGS (3)
  1. DIOVAN [Suspect]
     Active Substance: VALSARTAN
     Indication: PRODUCT USED FOR UNKNOWN INDICATION
     Dosage: 80 (AS REPORTED)
     Route: 065
     Dates: end: 20201004
  2. DIOVAN [Suspect]
     Active Substance: VALSARTAN
     Dosage: 160 (AS REPORTED)
     Route: 065
  3. DIOVAN [Suspect]
     Active Substance: VALSARTAN
     Dosage: 80
     Route: 065
     Dates: start: 202102

REACTIONS (7)
  - Bacterial infection [Unknown]
  - Hypertension [Recovered/Resolved]
  - General physical health deterioration [Unknown]
  - Hypotension [Unknown]
  - COVID-19 [Recovered/Resolved with Sequelae]
  - Coma [Unknown]
  - Gait disturbance [Unknown]

NARRATIVE: CASE EVENT DATE: 20201004
